FAERS Safety Report 23081123 (Version 1)
Quarter: 2023Q4

REPORT INFORMATION
  Report Type: Spontaneous
  Country: FR (occurrence: FR)
  Receive Date: 20231018
  Receipt Date: 20231018
  Transmission Date: 20240109
  Serious: Yes (Death, Hospitalization, Other)
  Sender: FDA-Public Use
  Company Number: None

PATIENT
  Age: 44 Year
  Sex: Male

DRUGS (22)
  1. CANCIDAS [Suspect]
     Active Substance: CASPOFUNGIN ACETATE
     Dosage: 50 MG DAILY
     Route: 042
     Dates: start: 20040121, end: 20040207
  2. OFLOXACIN [Suspect]
     Active Substance: OFLOXACIN
     Dosage: 400 MG DAILY
     Route: 042
     Dates: start: 20040129, end: 20040207
  3. CLAVULANATE POTASSIUM\TICARCILLIN DISODIUM [Suspect]
     Active Substance: CLAVULANATE POTASSIUM\TICARCILLIN DISODIUM
     Indication: Product used for unknown indication
     Dosage: UNK
     Route: 042
     Dates: start: 20040121, end: 20040207
  4. GANCICLOVIR [Suspect]
     Active Substance: GANCICLOVIR
     Dosage: 900 MG DAILY
     Route: 042
     Dates: start: 20040121, end: 20040207
  5. CLAVULANATE POTASSIUM\TICARCILLIN DISODIUM [Suspect]
     Active Substance: CLAVULANATE POTASSIUM\TICARCILLIN DISODIUM
     Indication: Product used for unknown indication
     Dosage: UNK
     Route: 042
     Dates: start: 20040211, end: 20040212
  6. NEORAL [Suspect]
     Active Substance: CYCLOSPORINE
     Indication: Bone marrow transplant
     Dosage: 100 MG DAILY
     Route: 048
     Dates: start: 20030219, end: 20040222
  7. VFEND [Suspect]
     Active Substance: VORICONAZOLE
     Indication: Aspergillus infection
     Dosage: 400 MG DAILY
     Route: 042
     Dates: start: 20040105, end: 20040210
  8. VANCOMYCIN [Concomitant]
     Active Substance: VANCOMYCIN
     Dosage: 2 I HAVE DAILY
     Dates: start: 20040129, end: 20040214
  9. THYMOCYTE IMMUNE GLOBULIN NOS [Concomitant]
     Active Substance: THYMOCYTE IMMUNE GLOBULIN NOS
     Dosage: UNK
     Dates: start: 20031219
  10. AMIKACIN [Concomitant]
     Active Substance: AMIKACIN
     Dosage: UNK
     Dates: start: 20031226
  11. FLUCONAZOLE [Concomitant]
     Active Substance: FLUCONAZOLE
     Dosage: UNK
     Dates: start: 20031226
  12. AMBISOME [Concomitant]
     Active Substance: AMPHOTERICIN B
     Dosage: UNK
     Dates: start: 20040204
  13. AMIKACIN [Concomitant]
     Active Substance: AMIKACIN
     Dosage: UNK
     Dates: start: 20040207, end: 20040209
  14. PENICILLIN V [Concomitant]
     Active Substance: PENICILLIN V
     Dosage: UNK
     Dates: start: 20031226
  15. PIPERACILLIN [Concomitant]
     Active Substance: PIPERACILLIN
     Dosage: 12 I DAILY
     Dates: start: 20040212
  16. PIPERACILLIN SODIUM\TAZOBACTAM SODIUM [Concomitant]
     Active Substance: PIPERACILLIN SODIUM\TAZOBACTAM SODIUM
     Dosage: UNK
     Dates: start: 20031226
  17. FLUDARABINE PHOSPHATE [Concomitant]
     Active Substance: FLUDARABINE PHOSPHATE
     Dosage: UNK
     Dates: start: 20031219
  18. BUSULFAN [Concomitant]
     Active Substance: BUSULFAN
     Dosage: UNK
     Dates: start: 20031219
  19. VALACYCLOVIR HYDROCHLORIDE [Concomitant]
     Active Substance: VALACYCLOVIR HYDROCHLORIDE
     Dosage: UNK
     Dates: start: 20031226
  20. AMIKACIN [Concomitant]
     Active Substance: AMIKACIN
     Dosage: UNK
     Dates: end: 20040128
  21. AMIKACIN [Concomitant]
     Active Substance: AMIKACIN
     Dosage: UNK
     Dates: end: 20031228
  22. SULFASALAZINE [Concomitant]
     Active Substance: SULFASALAZINE

REACTIONS (16)
  - Myoclonus [Fatal]
  - Torticollis [Fatal]
  - Acute pulmonary oedema [Fatal]
  - Altered state of consciousness [Fatal]
  - Tremor [Fatal]
  - Renal failure [Fatal]
  - Agitation [Fatal]
  - Encephalopathy [Fatal]
  - Multiple organ dysfunction syndrome [Fatal]
  - Aggression [Fatal]
  - Confusional state [Fatal]
  - Aspergillus infection [Fatal]
  - Respiratory distress [Fatal]
  - Acidosis [Fatal]
  - Lung disorder [Fatal]
  - Muscle rigidity [Fatal]

NARRATIVE: CASE EVENT DATE: 20040105
